FAERS Safety Report 24751795 (Version 1)
Quarter: 2024Q4

REPORT INFORMATION
  Report Type: Spontaneous
  Country: CN (occurrence: CN)
  Receive Date: 20241219
  Receipt Date: 20241219
  Transmission Date: 20250115
  Serious: Yes (Hospitalization, Other)
  Sender: NOVITIUM PHARMA
  Company Number: CN-NOVITIUMPHARMA-2024CNNVP02894

PATIENT
  Sex: Female
  Weight: 1 kg

DRUGS (1)
  1. DEXAMETHASONE [Suspect]
     Active Substance: DEXAMETHASONE
     Indication: Product used for unknown indication
     Route: 064

REACTIONS (3)
  - Hyperbilirubinaemia [Unknown]
  - Respiratory disorder [Unknown]
  - Foetal exposure during pregnancy [Unknown]
